FAERS Safety Report 6287894-2 (Version None)
Quarter: 2009Q3

REPORT INFORMATION
  Report Type: 
  Country: None (occurrence: None)
  Receive Date: 20090729
  Receipt Date: 20090722
  Transmission Date: 20100115
  Serious: Yes (Other)
  Sender: FDA-Public Use
  Company Number: BR-ASTRAZENECA-2009UW21041

PATIENT
  Age: 48 Year
  Sex: Male

DRUGS (6)
  1. ROSUVASTATIN CALCIUM [Suspect]
     Indication: HYPERCHOLESTEROLAEMIA
     Route: 048
  2. BUFERIN CARDIO [Concomitant]
     Indication: ANTICOAGULANT THERAPY
     Route: 048
  3. LOSARTANA [Concomitant]
     Indication: HYPERTENSION
     Dosage: 50/12.5
     Route: 048
  4. ALLOPURINOL [Concomitant]
     Indication: BLOOD URIC ACID
     Route: 048
  5. ACTOS [Concomitant]
     Indication: DIABETES MELLITUS
     Route: 048
  6. NARCARICINA [Concomitant]
     Indication: RENAL DISORDER
     Route: 048

REACTIONS (2)
  - CARDIAC DISORDER [None]
  - TACHYCARDIA [None]
